FAERS Safety Report 17168905 (Version 3)
Quarter: 2020Q2

REPORT INFORMATION
  Report Type: Spontaneous
  Country: US (occurrence: US)
  Receive Date: 20191218
  Receipt Date: 20200414
  Transmission Date: 20200713
  Serious: Yes (Hospitalization)
  Sender: FDA-Public Use
  Company Number: US-TAKEDA-2019TUS070143

PATIENT
  Sex: Male

DRUGS (4)
  1. NINLARO [Suspect]
     Active Substance: IXAZOMIB CITRATE
     Indication: PLASMA CELL MYELOMA
     Dosage: 4 MILLIGRAM, 1/WEEK
     Route: 048
     Dates: start: 20190222
  2. POMALYST [Suspect]
     Active Substance: POMALIDOMIDE
     Indication: PLASMA CELL MYELOMA
     Dosage: UNK
     Route: 065
  3. NINLARO [Suspect]
     Active Substance: IXAZOMIB CITRATE
     Dosage: 4 MILLIGRAM
     Route: 048
     Dates: start: 20190823
  4. POMALYST [Suspect]
     Active Substance: POMALIDOMIDE
     Dosage: UNK
     Route: 065
     Dates: start: 20190904

REACTIONS (3)
  - Pneumonia [Unknown]
  - Rash [Unknown]
  - Off label use [Unknown]
